FAERS Safety Report 10251626 (Version 1)
Quarter: 2014Q2

REPORT INFORMATION
  Report Type: Spontaneous
  Country: CA (occurrence: CA)
  Receive Date: 20140623
  Receipt Date: 20140623
  Transmission Date: 20141212
  Serious: Yes (Other)
  Sender: FDA-Public Use
  Company Number: CA-AMGEN-CANSP2014046094

PATIENT
  Age: 63 Year
  Sex: Female

DRUGS (7)
  1. ENBREL [Suspect]
     Indication: RHEUMATOID ARTHRITIS
     Dosage: 50 MG, UNK
     Route: 065
     Dates: start: 20130731, end: 20140611
  2. METHOTREXATE [Concomitant]
     Dosage: UNK
     Route: 065
  3. CELEBREX [Concomitant]
     Dosage: UNK
     Route: 065
  4. SYNTHROID [Concomitant]
     Dosage: UNK
     Route: 065
  5. PANTOLOC                           /01263204/ [Concomitant]
     Dosage: UNK
     Route: 065
  6. EFFEXOR [Concomitant]
     Dosage: UNK
     Route: 065
  7. CRESTOR [Concomitant]
     Dosage: UNK
     Route: 065

REACTIONS (1)
  - Neoplasm malignant [Unknown]
